FAERS Safety Report 7561302-3 (Version None)
Quarter: 2011Q2

REPORT INFORMATION
  Report Type: 
  Country: None (occurrence: None)
  Receive Date: 20110621
  Receipt Date: 20100621
  Transmission Date: 20111010
  Serious: No
  Sender: FDA-Public Use
  Company Number: US-ASTRAZENECA-2010SE17755

PATIENT
  Sex: Male

DRUGS (2)
  1. PULMICORT FLEXHALER [Suspect]
     Dosage: GENERIC
     Route: 055
  2. BLOOD PRESSURE MEDICATION [Suspect]

REACTIONS (1)
  - CHEST PAIN [None]
